FAERS Safety Report 23479359 (Version 11)
Quarter: 2025Q3

REPORT INFORMATION
  Report Type: Report from Study
  Country: US (occurrence: US)
  Receive Date: 20240205
  Receipt Date: 20250728
  Transmission Date: 20251020
  Serious: Yes (Other)
  Sender: UCB
  Company Number: US-UCBSA-2024001028

PATIENT
  Sex: Female
  Weight: 47 kg

DRUGS (7)
  1. FINTEPLA [Suspect]
     Active Substance: FENFLURAMINE
     Indication: Lennox-Gastaut syndrome
     Dosage: 6 MILLILITER, 2X/DAY (BID), (0.533 MG/KG/DAY)
     Route: 048
     Dates: start: 20221010
  2. FINTEPLA [Suspect]
     Active Substance: FENFLURAMINE
     Indication: Seizure
     Dosage: 6.4 MILLILITER, 2X/DAY (BID), (0.6 MILLIGRAM/KILOGRAM PER DAY)
     Route: 048
     Dates: start: 20240103
  3. FINTEPLA [Suspect]
     Active Substance: FENFLURAMINE
     Dosage: 6.8 MILLILITER, 2X/DAY (BID), (0.6 MILLIGRAM/KILOGRAM PER DAY)
     Route: 048
     Dates: start: 2024
  4. FINTEPLA [Suspect]
     Active Substance: FENFLURAMINE
     Dosage: 6.8 MILLILITER, 2X/DAY (BID)
     Dates: start: 2024
  5. FINTEPLA [Suspect]
     Active Substance: FENFLURAMINE
     Dosage: 6.8 MILLILITER, 2X/DAY (BID)
  6. KEPPRA [Concomitant]
     Active Substance: LEVETIRACETAM
     Indication: Lennox-Gastaut syndrome
     Dosage: 30 MILLILITER, 3X/DAY (TID)
  7. LACOSAMIDE [Concomitant]
     Active Substance: LACOSAMIDE
     Indication: Product used for unknown indication
     Dosage: 80 MILLILITER, 3X/DAY (TID)

REACTIONS (8)
  - Mitral valve incompetence [Not Recovered/Not Resolved]
  - Tricuspid valve incompetence [Not Recovered/Not Resolved]
  - Seizure [Recovered/Resolved]
  - Aortic valve thickening [Not Recovered/Not Resolved]
  - Prescribed overdose [Unknown]
  - Off label use [Unknown]
  - Syringe issue [Unknown]
  - Drug ineffective [Unknown]

NARRATIVE: CASE EVENT DATE: 20240101
